FAERS Safety Report 4278575-5 (Version None)
Quarter: 2004Q1

REPORT INFORMATION
  Report Type: 
  Country: None (occurrence: None)
  Receive Date: 20040122
  Receipt Date: 20040109
  Transmission Date: 20041129
  Serious: Yes (Other)
  Sender: FDA-Public Use
  Company Number: 2004002061

PATIENT
  Age: 37 Year
  Sex: Male

DRUGS (11)
  1. PROCARDIA XL [Suspect]
     Indication: ILL-DEFINED DISORDER
     Dosage: 60 MG (DAILY)
     Dates: start: 19871201
  2. VIAGRA [Suspect]
     Indication: ERECTILE DYSFUNCTION
     Dosage: 100 MG (AS NEEDED)
  3. ATENOLOL [Concomitant]
  4. ALPRAZOLAM [Concomitant]
  5. TAMSULOSIN (TAMSULOSIN) [Concomitant]
  6. OXYBUTYNIN HYDROCHLORIDE (OXYBUTYNIN HYDROCHLORIDE) [Concomitant]
  7. GALANTAMINE (GALANTAMINE) [Concomitant]
  8. ZOLPIDEM TARTRATE [Concomitant]
  9. COLESEVELAM HYDROCHLORIDE (COLESEVALAM HYDROCHLORIDE) [Concomitant]
  10. ACETYLSALICYLIC ACID SRT [Concomitant]
  11. AXOTAL (OLD FORM) (CAFFEINE, BUTALBITAL, PARACETAMOL) [Concomitant]

REACTIONS (4)
  - CARDIOVASCULAR DISORDER [None]
  - ERECTILE DYSFUNCTION [None]
  - MYOCARDIAL INFARCTION [None]
  - POOR PERIPHERAL CIRCULATION [None]
